FAERS Safety Report 10756079 (Version 2)
Quarter: 2018Q2

REPORT INFORMATION
  Report Type: Spontaneous
  Country: CA (occurrence: CA)
  Receive Date: 20150202
  Receipt Date: 20180620
  Transmission Date: 20180711
  Serious: Yes (Disabling, Other)
  Sender: FDA-Public Use
  Company Number: CA-009507513-1501CAN011767

PATIENT
  Age: 54 Year
  Sex: Female
  Weight: 62.59 kg

DRUGS (5)
  1. D TABS [Concomitant]
     Indication: MENOPAUSE
     Dosage: 10000 IU, QW
     Route: 048
  2. CYANOCOBALAMIN. [Concomitant]
     Active Substance: CYANOCOBALAMIN
     Indication: COELIAC DISEASE
     Dosage: 1 ML, EVERY MONTH
     Route: 030
  3. FOSAMAX [Suspect]
     Active Substance: ALENDRONATE SODIUM
     Indication: OSTEOPOROSIS
     Dosage: 70 MG, 1 TABLET, QW
     Route: 048
     Dates: start: 20091220, end: 20130826
  4. FOSAVANCE [Suspect]
     Active Substance: ALENDRONATE SODIUM\CHOLECALCIFEROL
     Indication: OSTEOPOROSIS
     Dosage: 70 MG, 1 TABLET, QW
     Route: 048
     Dates: end: 201306
  5. CAL (CALCIUM CARBONATE) [Concomitant]
     Indication: MENOPAUSE
     Dosage: 500 MG, QD

REACTIONS (2)
  - Atypical femur fracture [Not Recovered/Not Resolved]
  - Fall [Not Recovered/Not Resolved]

NARRATIVE: CASE EVENT DATE: 20130601
